FAERS Safety Report 10281991 (Version 1)
Quarter: 2014Q3

REPORT INFORMATION
  Report Type: Report from Study
  Country: GB (occurrence: GB)
  Receive Date: 20140707
  Receipt Date: 20140707
  Transmission Date: 20150326
  Serious: Yes (Death)
  Sender: FDA-Public Use
  Company Number: GB-ABBVIE-14P-167-1256625-00

PATIENT
  Sex: Female
  Weight: 86 kg

DRUGS (1)
  1. HUMIRA [Suspect]
     Active Substance: ADALIMUMAB
     Indication: RHEUMATOID ARTHRITIS
     Route: 058
     Dates: start: 20050815, end: 20051122

REACTIONS (7)
  - Left ventricular failure [Fatal]
  - Atrial fibrillation [Fatal]
  - Diabetes mellitus [Fatal]
  - Renal failure chronic [Fatal]
  - Myocardial infarction [Fatal]
  - Renal failure acute [Fatal]
  - Gangrene [Fatal]
